FAERS Safety Report 10347568 (Version 1)
Quarter: 2014Q3

REPORT INFORMATION
  Report Type: Spontaneous
  Country: US (occurrence: None)
  Receive Date: 20140728
  Receipt Date: 20140728
  Transmission Date: 20150326
  Serious: No
  Sender: FDA-Public Use
  Company Number: None

PATIENT
  Age: 24 Year
  Sex: Female

DRUGS (3)
  1. ISOVUE 300 [Suspect]
     Active Substance: IOPAMIDOL
     Indication: IMAGING PROCEDURE
     Dates: start: 20140716, end: 20140716
  2. BARIUM SULFATE [Concomitant]
     Active Substance: BARIUM SULFATE
  3. ISOVUE 300 [Suspect]
     Active Substance: IOPAMIDOL
     Indication: DIAGNOSTIC PROCEDURE
     Dates: start: 20140716, end: 20140716

REACTIONS (1)
  - Urticaria [None]

NARRATIVE: CASE EVENT DATE: 20140716
